FAERS Safety Report 5604789-5 (Version None)
Quarter: 2008Q1

REPORT INFORMATION
  Report Type: 
  Country: None (occurrence: None)
  Receive Date: 20080128
  Receipt Date: 20080115
  Transmission Date: 20080703
  Serious: Yes (Hospitalization)
  Sender: FDA-Public Use
  Company Number: JP-ROCHE-542024

PATIENT
  Age: 56 Year
  Sex: Male

DRUGS (2)
  1. PEG-INTERFERON A-2A (RO 25-8310) [Suspect]
     Route: 058
     Dates: start: 20070928, end: 20080104
  2. RIBAVIRIN [Suspect]
     Route: 048
     Dates: start: 20070928, end: 20080111

REACTIONS (1)
  - MYASTHENIA GRAVIS [None]
